FAERS Safety Report 5123956-0 (Version None)
Quarter: 2006Q3

REPORT INFORMATION
  Report Type: 
  Country: None (occurrence: None)
  Receive Date: 20060811
  Receipt Date: 20060626
  Transmission Date: 20061208
  Serious: No
  Sender: FDA-Public Use
  Company Number: S06-USA-02460-01

PATIENT
  Age: 85 Year
  Sex: Male

DRUGS (8)
  1. NAMENDA [Suspect]
     Indication: DEMENTIA
     Dosage: 5 MG QD PO
     Route: 048
     Dates: start: 20060625
  2. ARICEPT [Concomitant]
  3. PROPRANOLOL [Concomitant]
  4. SINEMET [Concomitant]
  5. HYZAAR [Concomitant]
  6. HYZAAR [Concomitant]
  7. ZOCOR [Concomitant]
  8. ASPIRIN [Concomitant]

REACTIONS (1)
  - SOMNOLENCE [None]
